FAERS Safety Report 5130831-4 (Version None)
Quarter: 2006Q4

REPORT INFORMATION
  Report Type: 
  Country: None (occurrence: None)
  Receive Date: 20061019
  Receipt Date: 20060928
  Transmission Date: 20070319
  Serious: Yes (Hospitalization)
  Sender: FDA-Public Use
  Company Number: FR-NOVOPROD-257373

PATIENT
  Age: 3 Year
  Sex: Male

DRUGS (4)
  1. NORDITROPIN SIMPLEXX [Suspect]
     Indication: HYPOPITUITARISM
     Dosage: .3 MG, QD
     Route: 058
     Dates: start: 20051108, end: 20060721
  2. MINIRIN [Concomitant]
  3. LEVOTHYROXINE SODIUM [Concomitant]
  4. HYDROCORTISONE ACETATE [Concomitant]
     Dosage: 2 MG, QD
     Route: 048

REACTIONS (2)
  - CRANIOPHARYNGIOMA [None]
  - DISEASE RECURRENCE [None]
